FAERS Safety Report 7916140-6 (Version None)
Quarter: 2011Q4

REPORT INFORMATION
  Report Type: 
  Country: None (occurrence: None)
  Receive Date: 20111116
  Receipt Date: 20111109
  Transmission Date: 20120403
  Serious: Yes (Hospitalization, Other)
  Sender: FDA-Public Use
  Company Number: US-BIOGENIDEC-2010BI042070

PATIENT
  Age: 40 Year
  Sex: Female
  Weight: 100 kg

DRUGS (5)
  1. AVONEX [Suspect]
     Route: 030
     Dates: start: 20051201, end: 20060101
  2. AVONEX [Suspect]
     Route: 030
     Dates: start: 20000901, end: 20030101
  3. AVONEX [Suspect]
     Route: 030
     Dates: start: 20030101, end: 20040101
  4. AVONEX [Suspect]
     Indication: MULTIPLE SCLEROSIS
     Route: 030
     Dates: start: 20060201
  5. AVONEX [Suspect]
     Route: 030
     Dates: start: 20040101

REACTIONS (11)
  - CLAVICLE FRACTURE [None]
  - RENAL DISORDER [None]
  - FIBULA FRACTURE [None]
  - FRACTURED SACRUM [None]
  - ROAD TRAFFIC ACCIDENT [None]
  - WOUND [None]
  - JOINT EFFUSION [None]
  - PELVIC HAEMORRHAGE [None]
  - PELVIC FRACTURE [None]
  - FEMUR FRACTURE [None]
  - LUMBAR VERTEBRAL FRACTURE [None]
